FAERS Safety Report 7178376-4 (Version None)
Quarter: 2010Q4

REPORT INFORMATION
  Report Type: 
  Country: None (occurrence: None)
  Receive Date: 20101220
  Receipt Date: 20101208
  Transmission Date: 20110411
  Serious: Yes (Hospitalization)
  Sender: FDA-Public Use
  Company Number: DE-ELI_LILLY_AND_COMPANY-DE201012002136

PATIENT
  Age: 50 Year
  Sex: Male

DRUGS (5)
  1. CYMBALTA [Suspect]
     Indication: DEPRESSION
     Dosage: 60 MG, 2/D
     Route: 048
     Dates: start: 20090501, end: 20090701
  2. CYMBALTA [Suspect]
     Dosage: 60 MG, DAILY (1/D)
     Route: 048
     Dates: start: 20090701, end: 20091201
  3. CYMBALTA [Suspect]
     Dosage: 60 MG, 2/D
     Dates: start: 20091201
  4. EDRONAX [Concomitant]
     Dosage: 4 MG, UNKNOWN
     Dates: start: 20090501, end: 20090701
  5. EDRONAX [Concomitant]
     Dosage: 2 MG, UNKNOWN

REACTIONS (3)
  - AGGRESSION [None]
  - ANGER [None]
  - ANTISOCIAL BEHAVIOUR [None]
